FAERS Safety Report 9333198 (Version 1)
Quarter: 2013Q2

REPORT INFORMATION
  Report Type: Spontaneous
  Country: GB (occurrence: None)
  Receive Date: 20130604
  Receipt Date: 20130604
  Transmission Date: 20140414
  Serious: Yes (Death, Other)
  Sender: FDA-Public Use
  Company Number: AUR-APL-2013-04566

PATIENT
  Sex: Male
  Weight: 3.2 kg

DRUGS (2)
  1. SERTRALINE [Suspect]
     Indication: PANIC DISORDER
     Route: 064
     Dates: start: 20120514, end: 20130222
  2. VITAMINS [Concomitant]

REACTIONS (4)
  - Maternal drugs affecting foetus [None]
  - Caesarean section [None]
  - Stillbirth [None]
  - Umbilical cord abnormality [None]
